FAERS Safety Report 8059573-2 (Version None)
Quarter: 2012Q1

REPORT INFORMATION
  Report Type: 
  Country: None (occurrence: None)
  Receive Date: 20120120
  Receipt Date: 20120106
  Transmission Date: 20120608
  Serious: Yes (Hospitalization)
  Sender: FDA-Public Use
  Company Number: US-UCBSA-048049

PATIENT
  Age: 22 Year
  Sex: Male

DRUGS (5)
  1. CIMZIA [Suspect]
     Indication: CROHN'S DISEASE
     Route: 058
     Dates: start: 20110119
  2. FOLIC ACID [Concomitant]
     Dosage: DAILY DOSE:1 MG
  3. LIALDA [Concomitant]
     Dosage: DAILY DOSE: 8 GM
  4. ONDANSETRON HCL [Concomitant]
     Dosage: 4 MG, AS NEEDED
  5. CIPROFLOXACIN [Concomitant]

REACTIONS (6)
  - PYREXIA [None]
  - ASTHENIA [None]
  - SYNCOPE [None]
  - DIARRHOEA [None]
  - ANAL ABSCESS [None]
  - ABDOMINAL PAIN [None]
